FAERS Safety Report 15750601 (Version 1)
Quarter: 2018Q4

REPORT INFORMATION
  Report Type: Spontaneous
  Country: GB (occurrence: GB)
  Receive Date: 20181221
  Receipt Date: 20181221
  Transmission Date: 20190205
  Serious: Yes (Other)
  Sender: FDA-Public Use
  Company Number: GB-BRISTOL-MYERS SQUIBB COMPANY-BMS-2018-039901

PATIENT
  Age: 56 Year
  Sex: Female

DRUGS (1)
  1. METFORMIN HYDROCHLORIDE. [Suspect]
     Active Substance: METFORMIN HYDROCHLORIDE
     Indication: TYPE 2 DIABETES MELLITUS
     Route: 065

REACTIONS (5)
  - Hyperphagia [Unknown]
  - Neoplasm [Unknown]
  - Hypoglycaemia [Unknown]
  - Glycosylated haemoglobin decreased [Unknown]
  - Insulinoma [Unknown]

NARRATIVE: CASE EVENT DATE: 2017
